FAERS Safety Report 8420424-5 (Version None)
Quarter: 2012Q2

REPORT INFORMATION
  Report Type: 
  Country: None (occurrence: None)
  Receive Date: 20120607
  Receipt Date: 20120529
  Transmission Date: 20120825
  Serious: Yes (Hospitalization)
  Sender: FDA-Public Use
  Company Number: US-GILEAD-2012-0056187

PATIENT
  Sex: Female

DRUGS (10)
  1. DITROPAN [Concomitant]
  2. ATACAND [Concomitant]
  3. NORVASC [Concomitant]
     Dosage: UNK
     Dates: end: 20120524
  4. VIT B COMPLEX [Concomitant]
  5. CALCIUM VITAMIN D [Concomitant]
  6. GLUCOSAMINE CHONDROITIN            /01430901/ [Concomitant]
  7. METOPROLOL [Concomitant]
  8. AMBRISENTAN [Suspect]
     Indication: PULMONARY ARTERIAL HYPERTENSION
     Dosage: 10MG PER DAY
     Route: 048
     Dates: start: 20120116
  9. PLACEBO [Suspect]
     Indication: PULMONARY ARTERIAL HYPERTENSION
     Dosage: UNK
     Dates: start: 20120116
  10. NEXIUM [Concomitant]

REACTIONS (1)
  - RENAL FAILURE [None]
